FAERS Safety Report 6518617-7 (Version None)
Quarter: 2009Q4

REPORT INFORMATION
  Report Type: 
  Country: None (occurrence: None)
  Receive Date: 20091228
  Receipt Date: 20091217
  Transmission Date: 20100525
  Serious: Yes (Hospitalization)
  Sender: FDA-Public Use
  Company Number: US-JNJFOC-20091205317

PATIENT
  Sex: Female
  Weight: 40.82 kg

DRUGS (4)
  1. REMICADE [Suspect]
     Indication: COLITIS ULCERATIVE
     Route: 042
     Dates: start: 20080627, end: 20081204
  2. COLAZAL [Concomitant]
     Indication: COLITIS ULCERATIVE
  3. FOLIC ACID [Concomitant]
     Indication: DIARRHOEA
  4. EVISTA [Concomitant]
     Indication: OSTEOPOROSIS

REACTIONS (1)
  - ASTHENIA [None]
